FAERS Safety Report 8508076 (Version 2)
Quarter: 2013Q2

REPORT INFORMATION
  Report Type: Spontaneous
  Country: US (occurrence: US)
  Receive Date: 20120412
  Receipt Date: 20130603
  Transmission Date: 20140414
  Serious: No
  Sender: FDA-Public Use
  Company Number: US-ASTRAZENECA-2007UW21311

PATIENT
  Age: 60 Year
  Sex: Female

DRUGS (2)
  1. NEXIUM [Suspect]
     Indication: GASTROOESOPHAGEAL REFLUX DISEASE
     Route: 048
  2. BONIVA [Concomitant]

REACTIONS (7)
  - Gastric polyps [Unknown]
  - Stress [Unknown]
  - Contusion [Unknown]
  - Fall [Unknown]
  - Mouth haemorrhage [Unknown]
  - Headache [Unknown]
  - Malaise [Unknown]
